FAERS Safety Report 7299518-6 (Version None)
Quarter: 2011Q1

REPORT INFORMATION
  Report Type: 
  Country: None (occurrence: None)
  Receive Date: 20110217
  Receipt Date: 20110207
  Transmission Date: 20110831
  Serious: Yes (Hospitalization)
  Sender: FDA-Public Use
  Company Number: SE-ELI_LILLY_AND_COMPANY-SE201011000773

PATIENT
  Sex: Male
  Weight: 68 kg

DRUGS (10)
  1. BEVACIZUMAB [Suspect]
     Indication: NON-SMALL CELL LUNG CANCER
     Dosage: 7.5 MG/KG, DAY ONE EVERY 21 DAYS
     Dates: start: 20101027
  2. MOVICOL [Concomitant]
     Indication: CONSTIPATION
     Dosage: 13.8 G, 1 X 1
     Route: 048
  3. FOLIC ACID [Concomitant]
     Indication: PROPHYLAXIS
     Dates: start: 20101019
  4. PEMETREXED [Suspect]
     Indication: NON-SMALL CELL LUNG CANCER
     Dosage: 500 MG/M2, DAY ONE EVERY 21 DAYS
     Route: 042
     Dates: start: 20101027
  5. CISPLATIN [Suspect]
     Indication: NON-SMALL CELL LUNG CANCER
     Dosage: 75 MG/M2, DAY ONE EVERY 21 DAYS
     Route: 042
     Dates: start: 20101027
  6. VITAMIN B-12 [Concomitant]
     Indication: PROPHYLAXIS
     Dates: start: 20101019
  7. COZAAR [Concomitant]
     Indication: HYPERTENSION
     Dosage: 50 MG, X1
     Route: 048
     Dates: start: 19960101
  8. DEXAMETHASONE [Concomitant]
     Dates: start: 20101026
  9. AMLODIPINE [Concomitant]
     Indication: HYPERTENSION
     Dosage: 5 MG, X1
     Route: 048
     Dates: start: 19960101
  10. OXYCONTIN [Concomitant]
     Indication: PAIN
     Dosage: 10 MG, AS NEEDED
     Route: 048
     Dates: start: 20101014

REACTIONS (1)
  - TRANSIENT GLOBAL AMNESIA [None]
